FAERS Safety Report 9958527 (Version 3)
Quarter: 2014Q2

REPORT INFORMATION
  Report Type: Spontaneous
  Country: US (occurrence: US)
  Receive Date: 20140305
  Receipt Date: 20140505
  Transmission Date: 20141212
  Serious: Yes (Death)
  Sender: FDA-Public Use
  Company Number: US-AMGEN-USASP2014015127

PATIENT
  Age: 70 Year
  Sex: Female

DRUGS (2)
  1. NEULASTA [Suspect]
     Indication: UTERINE CANCER
     Dosage: 6 MG, Q3 WEEKS
     Route: 058
     Dates: start: 20091107, end: 20140109
  2. NEULASTA [Suspect]
     Indication: PROPHYLAXIS

REACTIONS (1)
  - Death [Fatal]
